FAERS Safety Report 9694878 (Version 1)
Quarter: 2013Q4

REPORT INFORMATION
  Report Type: Spontaneous
  Country: US (occurrence: US)
  Receive Date: 20131119
  Receipt Date: 20131119
  Transmission Date: 20140711
  Serious: Yes (Hospitalization, Other)
  Sender: FDA-Public Use
  Company Number: US-PFIZER INC-2013328328

PATIENT
  Age: 57 Year
  Sex: Female
  Weight: 77.1 kg

DRUGS (8)
  1. LYRICA [Suspect]
     Indication: DIABETIC NEUROPATHY
     Dosage: UNK, 1X/DAY
     Route: 048
     Dates: start: 2005, end: 2010
  2. SINGULAIR [Suspect]
     Indication: HYPERSENSITIVITY
     Dosage: UNK
     Route: 048
     Dates: start: 2009, end: 2009
  3. SINGULAIR [Suspect]
     Indication: ASTHMA
  4. SERTRALINE [Concomitant]
     Indication: DEPRESSION
     Dosage: UNK
  5. HYDROXYCHLOROQUINE [Concomitant]
     Dosage: UNK
  6. HYDROCHLOROTHIAZIDE [Concomitant]
     Dosage: UNK
  7. QUINAPRIL [Concomitant]
     Dosage: UNK
  8. METFORMIN [Concomitant]
     Indication: DIABETES MELLITUS
     Dosage: UNK

REACTIONS (3)
  - Suicidal ideation [Recovered/Resolved]
  - Depression [Recovered/Resolved]
  - Sleep disorder [Not Recovered/Not Resolved]
